FAERS Safety Report 7552912-8 (Version None)
Quarter: 2011Q2

REPORT INFORMATION
  Report Type: 
  Country: None (occurrence: None)
  Receive Date: 20110616
  Receipt Date: 20100625
  Transmission Date: 20111010
  Serious: No
  Sender: FDA-Public Use
  Company Number: US-ASTRAZENECA-2010SE29817

PATIENT
  Age: 60 Year
  Sex: Female

DRUGS (5)
  1. PERCOCET [Concomitant]
     Dosage: 5/325
  2. FASLODEX [Suspect]
     Indication: BREAST CANCER METASTATIC
     Route: 030
     Dates: start: 20100608
  3. FASLODEX [Suspect]
     Indication: METASTASES TO CENTRAL NERVOUS SYSTEM
     Route: 030
     Dates: start: 20100608
  4. PEPTIC AC [Concomitant]
  5. FENTANYL-100 [Concomitant]

REACTIONS (1)
  - JOINT SWELLING [None]
